FAERS Safety Report 25081160 (Version 2)
Quarter: 2025Q1

REPORT INFORMATION
  Report Type: Spontaneous
  Country: CN (occurrence: CN)
  Receive Date: 20250315
  Receipt Date: 20250321
  Transmission Date: 20250408
  Serious: Yes (Hospitalization, Other)
  Sender: JIANGSU HANSOH PHARMACEUTICAL
  Company Number: CN-Jiangsu Hansoh Pharmaceutical Co., Ltd-2172984

PATIENT
  Age: 65 Year
  Sex: Female
  Weight: 73.5 kg

DRUGS (2)
  1. PEMETREXED [Suspect]
     Active Substance: PEMETREXED
     Indication: Lung neoplasm malignant
     Dates: start: 20250218, end: 20250218
  2. CISPLATIN [Concomitant]
     Active Substance: CISPLATIN
     Dates: start: 20250218, end: 20250218

REACTIONS (2)
  - Myelosuppression [Recovering/Resolving]
  - Gastroenteritis [Unknown]

NARRATIVE: CASE EVENT DATE: 20250223
